FAERS Safety Report 16033196 (Version 3)
Quarter: 2019Q4

REPORT INFORMATION
  Report Type: Report from Study
  Country: None (occurrence: HU)
  Receive Date: 20190305
  Receipt Date: 20191205
  Transmission Date: 20200122
  Serious: Yes (Hospitalization)
  Sender: FDA-Public Use
  Company Number: HU-ABBVIE-19S-076-2683833-00

PATIENT
  Age: 72 Year
  Sex: Male

DRUGS (3)
  1. DUODOPA [Suspect]
     Active Substance: CARBIDOPA\LEVODOPA
     Indication: PARKINSON^S DISEASE
     Dosage: MD 10.0 ML; CD DURING THE DAY 7.5 ML/H;ED 2.0 ML
     Route: 050
     Dates: start: 20150422
  2. CORBILTA [Concomitant]
     Active Substance: CARBIDOPA\ENTACAPONE\LEVODOPA
     Indication: PARKINSON^S DISEASE
     Dosage: 150/37.5/200 MG, 2 TABLETS AT NIGHT
     Route: 048
  3. TEGRETOL XR [Concomitant]
     Active Substance: CARBAMAZEPINE
     Indication: MUSCLE SPASMS
     Route: 048

REACTIONS (6)
  - Aspiration [Unknown]
  - Device deployment issue [Unknown]
  - Wrong technique in device usage process [Unknown]
  - Dysphagia [Unknown]
  - Embedded device [Not Recovered/Not Resolved]
  - General physical health deterioration [Unknown]

NARRATIVE: CASE EVENT DATE: 20190221
